FAERS Safety Report 5829937-3 (Version None)
Quarter: 2008Q3

REPORT INFORMATION
  Report Type: 
  Country: None (occurrence: None)
  Receive Date: 20080801
  Receipt Date: 20080725
  Transmission Date: 20090109
  Serious: Yes (Other)
  Sender: FDA-Public Use
  Company Number: US-JNJCH-2008019671

PATIENT
  Sex: Female
  Weight: 46.3 kg

DRUGS (1)
  1. NATURAL CITRUS LISTERINE [Suspect]
     Indication: DENTAL DISORDER PROPHYLAXIS
     Dosage: TEXT:1/2 CAPFUL ONCE DAILY
     Route: 048
     Dates: start: 20070101, end: 20080722

REACTIONS (5)
  - APPLICATION SITE BURN [None]
  - CHAPPED LIPS [None]
  - ORAL PAIN [None]
  - PHARMACEUTICAL PRODUCT COMPLAINT [None]
  - TONGUE DISORDER [None]
